FAERS Safety Report 6938761-X (Version None)
Quarter: 2010Q3

REPORT INFORMATION
  Report Type: 
  Country: None (occurrence: None)
  Receive Date: 20100824
  Receipt Date: 20100818
  Transmission Date: 20110219
  Serious: Yes (Death)
  Sender: FDA-Public Use
  Company Number: US-ROCHE-713597

PATIENT
  Sex: Female
  Weight: 73 kg

DRUGS (14)
  1. BEVACIZUMAB [Suspect]
     Indication: NON-SMALL CELL LUNG CANCER
     Route: 042
     Dates: start: 20100318, end: 20100609
  2. PEMETREXED [Suspect]
     Indication: NON-SMALL CELL LUNG CANCER
     Route: 042
     Dates: start: 20100318, end: 20100609
  3. CARBOPLATIN [Suspect]
     Indication: NON-SMALL CELL LUNG CANCER
     Route: 042
     Dates: start: 20100318, end: 20100609
  4. VITAMIN B-12 [Concomitant]
     Dates: start: 20100310
  5. FOLIC ACID [Concomitant]
     Dates: start: 20100310
  6. LEXAPRO [Concomitant]
  7. ZOFRAN [Concomitant]
     Dates: start: 20100318
  8. DECADRON [Concomitant]
     Dates: start: 20100318
  9. PERCOCET [Concomitant]
     Dates: start: 20100318
  10. WELLBUTRIN [Concomitant]
  11. VITAMIN D [Concomitant]
     Dates: start: 20100310
  12. DIOVAN [Concomitant]
  13. OXYCONTIN [Concomitant]
     Dates: start: 20100310
  14. ATIVAN [Concomitant]
     Dates: start: 20100609

REACTIONS (1)
  - CARDIAC ARREST [None]
